FAERS Safety Report 18587479 (Version 1)
Quarter: 2020Q4

REPORT INFORMATION
  Report Type: Report from Study
  Country: CA (occurrence: CA)
  Receive Date: 20201207
  Receipt Date: 20201207
  Transmission Date: 20210114
  Serious: Yes (Other)
  Sender: FDA-Public Use
  Company Number: CA-JNJFOC-20201202824

PATIENT
  Age: 15 Year
  Sex: Male

DRUGS (1)
  1. REMICADE [Suspect]
     Active Substance: INFLIXIMAB
     Indication: PRODUCT USED FOR UNKNOWN INDICATION
     Dosage: ON 30-NOV-2020, THE PATIENT RECEIVED 500 MILLIGRAMS, 7TH INFLIXIMAB INFUSION.
     Route: 042

REACTIONS (2)
  - Wrist fracture [Recovered/Resolved]
  - Sports injury [Unknown]

NARRATIVE: CASE EVENT DATE: 20201007
